FAERS Safety Report 8430989-5 (Version None)
Quarter: 2012Q2

REPORT INFORMATION
  Report Type: 
  Country: None (occurrence: None)
  Receive Date: 20120612
  Receipt Date: 20120602
  Transmission Date: 20120825
  Serious: Yes (Hospitalization, Other)
  Sender: FDA-Public Use
  Company Number: US-PFIZER INC-2012133080

PATIENT
  Sex: Female
  Weight: 96.145 kg

DRUGS (8)
  1. JANUVIA [Concomitant]
     Indication: TYPE 2 DIABETES MELLITUS
     Dosage: 100 MG, 1X/DAY
     Route: 048
     Dates: start: 20000101
  2. FESOTERODINE [Suspect]
     Indication: HYPERTONIC BLADDER
     Dosage: 8 MG, 1X/DAY
     Route: 048
     Dates: start: 20120410, end: 20120523
  3. LISINOPRIL [Concomitant]
     Indication: HYPERTENSION
     Dosage: 2.5 MG, 1X/DAY
     Route: 048
     Dates: start: 20070101
  4. VITAMIN D [Concomitant]
     Indication: VITAMIN D DEFICIENCY
     Dosage: 1600 MG, 1X/DAY
     Route: 048
     Dates: start: 20000101
  5. LIPITOR [Concomitant]
     Indication: HYPERLIPIDAEMIA
     Dosage: 20 MG, 1X/DAY
     Route: 048
     Dates: start: 20040101
  6. METFORMIN [Concomitant]
     Indication: TYPE 2 DIABETES MELLITUS
     Dosage: 200 MG, 1X/DAY
     Route: 048
     Dates: start: 20020101
  7. FLUOXETINE [Concomitant]
     Indication: SEASONAL ALLERGY
     Dosage: 20 MG, 1X/DAY
     Route: 048
     Dates: start: 19920101
  8. DICLOFENAC [Concomitant]
     Indication: OSTEOARTHRITIS
     Dosage: 50 MG, 2X/DAY
     Route: 048
     Dates: start: 20120419

REACTIONS (1)
  - COLITIS ISCHAEMIC [None]
